FAERS Safety Report 8013067-9 (Version None)
Quarter: 2011Q4

REPORT INFORMATION
  Report Type: 
  Country: None (occurrence: None)
  Receive Date: 20111223
  Receipt Date: 20111223
  Transmission Date: 20120403
  Serious: No
  Sender: FDA-Public Use
  Company Number: None

PATIENT
  Sex: Female
  Weight: 73.6 kg

DRUGS (2)
  1. CISPLATIN [Suspect]
     Dosage: 142 MG
  2. ETOPOSIDE [Suspect]
     Dosage: 531 MG

REACTIONS (1)
  - NEUTROPENIA [None]
